FAERS Safety Report 13376794 (Version 2)
Quarter: 2017Q3

REPORT INFORMATION
  Report Type: Spontaneous
  Country: US (occurrence: US)
  Receive Date: 20170328
  Receipt Date: 20170801
  Transmission Date: 20171127
  Serious: Yes (Hospitalization)
  Sender: FDA-Public Use
  Company Number: US-ASTRAZENECA-2017SE29946

PATIENT
  Age: 848 Month
  Sex: Female

DRUGS (5)
  1. PANTOPRAZOLE [Concomitant]
     Active Substance: PANTOPRAZOLE
     Indication: GASTROOESOPHAGEAL REFLUX DISEASE
     Route: 048
     Dates: start: 2012
  2. ATORVASTATIN [Concomitant]
     Active Substance: ATORVASTATIN
     Indication: BLOOD CHOLESTEROL ABNORMAL
     Route: 048
     Dates: start: 2012
  3. SYMBICORT [Suspect]
     Active Substance: BUDESONIDE\FORMOTEROL FUMARATE DIHYDRATE
     Indication: ASTHMA
     Dosage: 160/4.5 MCG, 2 PUFFS TWICE DAILY
     Route: 055
     Dates: start: 2014
  4. ALBUTEROL. [Concomitant]
     Active Substance: ALBUTEROL
     Indication: ASTHMA
     Dosage: 2 PUFFS EVERY 4 HOURS AS NEEDED
     Route: 055
  5. CALCIUM CITRATE WITH D3 [Concomitant]
     Indication: OSTEOPOROSIS
     Dosage: 620MG/500MG 2 CAPSULES TWICE DAILY
     Route: 048
     Dates: start: 2010

REACTIONS (8)
  - Anxiety [Unknown]
  - Device failure [Unknown]
  - Laryngitis [Unknown]
  - Device malfunction [Unknown]
  - Asthma [Unknown]
  - Intentional product misuse [Unknown]
  - Respiratory arrest [Unknown]
  - Off label use of device [Unknown]

NARRATIVE: CASE EVENT DATE: 201703
